FAERS Safety Report 18527051 (Version 1)
Quarter: 2020Q4

REPORT INFORMATION
  Report Type: Other
  Country: AT (occurrence: AT)
  Receive Date: 20201120
  Receipt Date: 20201120
  Transmission Date: 20210114
  Serious: Yes (Hospitalization, Other)
  Sender: FDA-Public Use
  Company Number: AT-ROCHE-2718109

PATIENT
  Age: 61 Year
  Sex: Female
  Weight: 80 kg

DRUGS (42)
  1. CAPECITABINE. [Suspect]
     Active Substance: CAPECITABINE
     Indication: BREAST CANCER METASTATIC
     Dosage: DOSE ON: 04/SEP/2018, 10/SEP/2018, 27/MAY/2019
     Route: 048
     Dates: start: 20180904, end: 20180910
  2. TRASTUZUMAB EMTANSINE [Suspect]
     Active Substance: ADO-TRASTUZUMAB EMTANSINE
     Indication: BREAST CANCER METASTATIC
     Dosage: DOSE ON 24/APR/2018, 15/MAY/2018
     Route: 042
     Dates: start: 20171212
  3. TRASTUZUMAB EMTANSINE [Suspect]
     Active Substance: ADO-TRASTUZUMAB EMTANSINE
     Dosage: MOST RECENT DOSE PRIOR TO THE EVENT
     Route: 042
     Dates: start: 20180515
  4. VENLAFAB [Concomitant]
     Active Substance: VENLAFAXINE HYDROCHLORIDE
     Dosage: ONGOING = NOT CHECKED
     Dates: start: 20190315, end: 20190907
  5. AUGMENTIN [Concomitant]
     Active Substance: AMOXICILLIN\CLAVULANATE POTASSIUM
     Indication: RESPIRATORY TRACT INFECTION
     Dosage: ONGOING = NOT CHECKED
     Dates: start: 20190509, end: 20190516
  6. LASIX [Concomitant]
     Active Substance: FUROSEMIDE
     Dates: end: 20190907
  7. BAMBEC [Concomitant]
     Active Substance: BAMBUTEROL HYDROCHLORIDE
  8. PERTUZUMAB. [Suspect]
     Active Substance: PERTUZUMAB
     Indication: BREAST CANCER METASTATIC
     Dosage: DOSE ON: 21/NOV/2017
     Route: 042
     Dates: start: 20170306
  9. DAFLON [Concomitant]
     Dates: end: 20190907
  10. NOVALGIN (AUSTRIA) [Concomitant]
     Indication: HEPATIC PAIN
     Dates: start: 20171212, end: 20190907
  11. CONCOR COR [Concomitant]
     Active Substance: BISOPROLOL FUMARATE
     Dates: end: 20190907
  12. CORTISON [Concomitant]
     Active Substance: CORTISONE ACETATE
     Indication: RESPIRATORY TRACT INFECTION
     Dosage: ONGOING = NOT CHECKED
     Dates: start: 20190615, end: 20190615
  13. ZOLPIDEM [Concomitant]
     Active Substance: ZOLPIDEM TARTRATE
     Dates: start: 20190215, end: 20190315
  14. TRASTUZUMAB. [Suspect]
     Active Substance: TRASTUZUMAB
     Indication: BREAST CANCER METASTATIC
     Dosage: DOSE ON 21/NOV/2017, 04/SEP/2018, 23/OCT/2018, 27/MAY/2019
     Route: 042
     Dates: start: 20170306
  15. KALIORAL [Concomitant]
     Dosage: ONGOING = CHECKED
  16. PANTOLOC [Concomitant]
     Active Substance: PANTOPRAZOLE SODIUM
     Dosage: ONGOING = CHECKED
     Dates: start: 20170302
  17. SUCRALFAT [Concomitant]
     Active Substance: SUCRALFATE
     Dates: end: 20190907
  18. EMEND [Concomitant]
     Active Substance: APREPITANT
     Dates: start: 20180127, end: 20181013
  19. HYDAL [Concomitant]
     Active Substance: HYDROMORPHONE HYDROCHLORIDE
     Indication: BACK PAIN
     Dates: start: 20180628, end: 20190226
  20. EMEND [Concomitant]
     Active Substance: APREPITANT
     Dates: start: 20180128, end: 20181014
  21. PASPERTIN [Concomitant]
     Dates: start: 20171212, end: 20190907
  22. NOVALGIN (AUSTRIA) [Concomitant]
     Indication: BACK PAIN
     Dates: start: 20170327, end: 20191003
  23. DOXYCYCLIN [Concomitant]
     Active Substance: DOXYCYCLINE
     Indication: RESPIRATORY TRACT INFECTION
     Dosage: ONGOING = NOT CHECKED
     Dates: start: 20190502, end: 20190509
  24. LYRICA [Concomitant]
     Active Substance: PREGABALIN
     Indication: BACK PAIN
     Dates: start: 20181227, end: 20190226
  25. LIXIANA [Concomitant]
     Active Substance: EDOXABAN TOSYLATE
     Indication: PULMONARY EMBOLISM
     Dosage: ONGOING = CHECKED
     Dates: start: 20190315
  26. KYTRIL [Concomitant]
     Active Substance: GRANISETRON HYDROCHLORIDE
     Dates: start: 20171212, end: 20181013
  27. NOVALGIN (AUSTRIA) [Concomitant]
     Indication: RESPIRATORY TRACT INFECTION
     Dates: start: 20190315, end: 20190907
  28. NOVALGIN (AUSTRIA) [Concomitant]
     Dates: start: 20190509, end: 20190509
  29. HYDAL [Concomitant]
     Active Substance: HYDROMORPHONE HYDROCHLORIDE
     Dates: start: 20181227, end: 20190907
  30. MIRTAZAPIN [Concomitant]
     Active Substance: MIRTAZAPINE
     Dosage: ONGOING = NOT CHECKED
     Dates: start: 20190315, end: 20190907
  31. LIXIANA [Concomitant]
     Active Substance: EDOXABAN TOSYLATE
     Indication: PULMONARY EMBOLISM
     Dosage: ONGOING = NOT CHECKED
     Dates: start: 20190315, end: 20190907
  32. PARACODIN [Concomitant]
     Indication: DYSPNOEA
     Dosage: ONGOING = CHECKED
     Dates: start: 20190510
  33. BUPRENORPHIN [Concomitant]
     Active Substance: BUPRENORPHINE
  34. EMEND [Concomitant]
     Active Substance: APREPITANT
     Dates: start: 20180129, end: 20181015
  35. DEXAMETHASON [Concomitant]
     Active Substance: DEXAMETHASONE
     Dates: start: 20170829, end: 20181013
  36. VINORELBINE [Suspect]
     Active Substance: VINORELBINE TARTRATE
     Indication: BREAST CANCER METASTATIC
     Dosage: ONE DOSE ON 30/MAY/2017, 27/JUN/2017
     Route: 048
     Dates: start: 20170306
  37. LAEVOLAC [Concomitant]
     Active Substance: LACTULOSE
     Dates: start: 20171212, end: 20190907
  38. TEMESTA [Concomitant]
     Dates: start: 20190226
  39. FORTECORTIN [Concomitant]
     Active Substance: DEXAMETHASONE
     Dates: start: 20190215, end: 20190215
  40. FORTECORTIN [Concomitant]
     Active Substance: DEXAMETHASONE
     Dates: start: 20190215, end: 20190907
  41. TRITTICO [Concomitant]
     Active Substance: TRAZODONE HYDROCHLORIDE
     Dates: start: 20181215, end: 20190226
  42. MIRTAZAPIN [Concomitant]
     Active Substance: MIRTAZAPINE
     Dosage: ONGOING = CHECKED
     Dates: start: 20190315

REACTIONS (7)
  - Blindness [Recovered/Resolved with Sequelae]
  - Vertigo [Recovered/Resolved]
  - Angina pectoris [Recovered/Resolved]
  - Headache [Recovered/Resolved]
  - Vertigo [Not Recovered/Not Resolved]
  - Polyneuropathy [Not Recovered/Not Resolved]
  - Polyneuropathy [Recovered/Resolved]

NARRATIVE: CASE EVENT DATE: 20180904
